APPROVED DRUG PRODUCT: METOPROLOL TARTRATE AND HYDROCHLOROTHIAZIDE
Active Ingredient: HYDROCHLOROTHIAZIDE; METOPROLOL TARTRATE
Strength: 25MG;100MG
Dosage Form/Route: TABLET;ORAL
Application: A202870 | Product #002 | TE Code: AB
Applicant: ALEMBIC PHARMACEUTICALS LTD
Approved: Nov 6, 2013 | RLD: No | RS: Yes | Type: RX